FAERS Safety Report 25228062 (Version 1)
Quarter: 2025Q2

REPORT INFORMATION
  Report Type: Spontaneous
  Country: US (occurrence: US)
  Receive Date: 20250423
  Receipt Date: 20250423
  Transmission Date: 20250717
  Serious: No
  Sender: AUROBINDO
  Company Number: US-AUROBINDO-AUR-APL-2024-039020

PATIENT
  Sex: Male
  Weight: 122 kg

DRUGS (1)
  1. SPIRONOLACTONE [Suspect]
     Active Substance: SPIRONOLACTONE
     Indication: Product used for unknown indication
     Route: 065
     Dates: start: 20240507, end: 20240531

REACTIONS (4)
  - Diarrhoea [Unknown]
  - Clostridium test positive [Recovered/Resolved]
  - Product impurity [Unknown]
  - Product quality issue [Unknown]

NARRATIVE: CASE EVENT DATE: 20240507
